FAERS Safety Report 19308859 (Version 1)
Quarter: 2021Q2

REPORT INFORMATION
  Report Type: Spontaneous
  Country: DE (occurrence: DE)
  Receive Date: 20210526
  Receipt Date: 20210526
  Transmission Date: 20210717
  Serious: Yes (Other)
  Sender: FDA-Public Use
  Company Number: DE-TORRENT-00020300

PATIENT
  Age: 31 Year
  Sex: Male
  Weight: 92 kg

DRUGS (1)
  1. ESCITALOPRAM [Suspect]
     Active Substance: ESCITALOPRAM OXALATE
     Indication: DEPRESSION
     Dosage: 10MG
     Route: 048
     Dates: start: 20200315, end: 20201014

REACTIONS (5)
  - Premature ejaculation [Not Recovered/Not Resolved]
  - Erectile dysfunction [Not Recovered/Not Resolved]
  - Sexual dysfunction [Not Recovered/Not Resolved]
  - Loss of libido [Not Recovered/Not Resolved]
  - Male sexual dysfunction [Not Recovered/Not Resolved]

NARRATIVE: CASE EVENT DATE: 20201017
